FAERS Safety Report 5803318-0 (Version None)
Quarter: 2008Q3

REPORT INFORMATION
  Report Type: 
  Country: None (occurrence: None)
  Receive Date: 20080708
  Receipt Date: 20080702
  Transmission Date: 20090109
  Serious: Yes (Other)
  Sender: FDA-Public Use
  Company Number: D0057936A

PATIENT

DRUGS (2)
  1. VIANI MITE [Suspect]
     Route: 055
  2. SINGULAIR [Suspect]
     Route: 065

REACTIONS (2)
  - PHOTOSENSITIVITY REACTION [None]
  - SUNBURN [None]
